FAERS Safety Report 25779627 (Version 1)
Quarter: 2025Q3

REPORT INFORMATION
  Report Type: Spontaneous
  Country: US (occurrence: None)
  Receive Date: 20250909
  Receipt Date: 20250909
  Transmission Date: 20251021
  Serious: Yes (Other)
  Sender: FDA-CTU
  Company Number: None

PATIENT
  Age: 28 Year
  Sex: Male

DRUGS (3)
  1. INFLECTRA [Suspect]
     Active Substance: INFLIXIMAB-DYYB
  2. TREMFYA [Suspect]
     Active Substance: GUSELKUMAB
  3. REMICADE [Concomitant]
     Active Substance: INFLIXIMAB

REACTIONS (2)
  - Cross sensitivity reaction [None]
  - Drug hypersensitivity [None]
